FAERS Safety Report 24383089 (Version 1)
Quarter: 2024Q4

REPORT INFORMATION
  Report Type: Spontaneous
  Country: US (occurrence: US)
  Receive Date: 20241001
  Receipt Date: 20241001
  Transmission Date: 20250115
  Serious: Yes (Hospitalization, Other)
  Sender: MSN LABORATORIES
  Company Number: US-MLMSERVICE-20240903-PI179837-00232-2

PATIENT

DRUGS (8)
  1. VALGANCICLOVIR HYDROCHLORIDE [Suspect]
     Active Substance: VALGANCICLOVIR HYDROCHLORIDE
     Indication: Antibiotic prophylaxis
     Route: 065
  2. POSACONAZOLE [Suspect]
     Active Substance: POSACONAZOLE
     Indication: Antibiotic prophylaxis
     Route: 065
  3. MYCOPHENOLATE MOFETIL [Suspect]
     Active Substance: MYCOPHENOLATE MOFETIL
     Indication: Immunosuppression
     Dosage: 360 MG EVERY 12 HOUR
     Route: 065
  4. TACROLIMUS [Concomitant]
     Active Substance: TACROLIMUS
     Indication: Immunosuppression
     Dosage: 0.75 MG IN EVERY 12 HOURS
     Route: 065
  5. PREDNISONE [Concomitant]
     Active Substance: PREDNISONE
     Indication: Immunosuppression
     Dosage: 5 MG EVERY 12 HOURS
     Route: 065
  6. AZITHROMYCIN [Concomitant]
     Active Substance: AZITHROMYCIN
     Route: 065
  7. ASPIRIN [Concomitant]
     Active Substance: ASPIRIN
     Indication: Product used for unknown indication
     Route: 065
  8. ATOVAQUONE [Concomitant]
     Active Substance: ATOVAQUONE
     Route: 065

REACTIONS (10)
  - Presyncope [Unknown]
  - Dehydration [Unknown]
  - Drug interaction [Recovered/Resolved]
  - Weight decreased [Unknown]
  - Hypophagia [Unknown]
  - Pancytopenia [Recovering/Resolving]
  - Anaemia megaloblastic [Unknown]
  - Leukocytosis [Recovering/Resolving]
  - Mouth ulceration [Recovered/Resolved]
  - Asthenia [Unknown]
